FAERS Safety Report 7055860-5 (Version None)
Quarter: 2010Q4

REPORT INFORMATION
  Report Type: 
  Country: None (occurrence: None)
  Receive Date: 20101021
  Receipt Date: 20101012
  Transmission Date: 20110411
  Serious: Yes (Hospitalization)
  Sender: FDA-Public Use
  Company Number: JP-MERCK-1008USA00056

PATIENT
  Age: 11 Year
  Sex: Male

DRUGS (45)
  1. PEPCID [Suspect]
     Route: 041
     Dates: start: 20100617, end: 20100626
  2. CEFAZOLIN SODIUM [Suspect]
     Route: 041
     Dates: start: 20100622, end: 20100624
  3. CERCINE [Suspect]
     Route: 048
     Dates: start: 20100622, end: 20100701
  4. CERCINE [Suspect]
     Route: 048
     Dates: start: 20100702, end: 20100722
  5. VICCILLIN [Suspect]
     Route: 042
     Dates: start: 20100715, end: 20100716
  6. TAKEPRON [Suspect]
     Route: 048
     Dates: start: 20100628, end: 20100728
  7. ROCEPHIN [Suspect]
     Indication: INFECTION
     Route: 042
     Dates: start: 20100630, end: 20100707
  8. BIOFERMIN R [Suspect]
     Route: 048
     Dates: start: 20100711, end: 20100718
  9. RISPERDAL [Suspect]
     Route: 048
     Dates: start: 20100702, end: 20100714
  10. CALONAL [Suspect]
     Indication: PYREXIA
     Route: 048
     Dates: start: 20100627, end: 20100716
  11. PHENOBARBITAL TAB [Suspect]
     Route: 048
     Dates: start: 20100622, end: 20100709
  12. MIDAZOLAM HCL [Suspect]
     Route: 042
     Dates: start: 20100617, end: 20100709
  13. CLINDAMYCIN PHOSPHATE [Suspect]
     Route: 042
     Dates: start: 20100708, end: 20100710
  14. PIPERACILLIN SODIUM [Suspect]
     Route: 042
     Dates: start: 20100715, end: 20100716
  15. MORPHINA [Suspect]
     Dosage: 2 MG/KG
     Route: 041
     Dates: start: 20100621, end: 20100709
  16. LASIX [Suspect]
     Route: 048
     Dates: start: 20100626, end: 20100706
  17. ALDACTONE [Suspect]
     Route: 048
     Dates: start: 20100626, end: 20100706
  18. LACTOBACILLUS CASEI [Suspect]
     Route: 048
     Dates: start: 20100702, end: 20100709
  19. DEPAS [Suspect]
     Route: 048
     Dates: start: 20100701, end: 20100701
  20. TRICLORYL [Suspect]
     Route: 048
     Dates: start: 20100628, end: 20100705
  21. LAXOBERON [Suspect]
     Route: 048
     Dates: start: 20100620, end: 20100620
  22. OMEPRAL [Suspect]
     Route: 041
     Dates: start: 20100716, end: 20100721
  23. HEPARIN [Suspect]
     Dosage: 5IU/KG
     Route: 041
     Dates: start: 20100808, end: 20100812
  24. GLYCEOL (FRUCTOSE (+) GLYCERIN (+) SODIUM CHLORIDE) [Suspect]
     Route: 041
     Dates: start: 20100617, end: 20100618
  25. DECADRON [Suspect]
     Route: 041
     Dates: start: 20100617, end: 20100622
  26. ATROPINE SULFATE [Suspect]
     Route: 041
     Dates: start: 20100617, end: 20100622
  27. EPINEPHRINE [Suspect]
     Route: 041
     Dates: start: 20100621, end: 20100621
  28. CALCICOL [Suspect]
     Route: 041
     Dates: start: 20100621, end: 20100621
  29. FENTANYL [Suspect]
     Route: 041
     Dates: start: 20100621, end: 20100708
  30. ULTIVA [Suspect]
     Route: 041
     Dates: start: 20100621, end: 20100708
  31. NICARPINE [Suspect]
     Route: 041
     Dates: start: 20100622, end: 20100624
  32. PRECEDEX [Suspect]
     Route: 041
     Dates: start: 20100704, end: 20100705
  33. ROCURONIUM BROMIDE [Suspect]
     Route: 041
     Dates: start: 20100617, end: 20100706
  34. XYLOCAINE [Suspect]
     Route: 041
     Dates: start: 20100621, end: 20100709
  35. PANTOL [Suspect]
     Route: 041
     Dates: start: 20100604, end: 20100705
  36. ATARAX [Suspect]
     Route: 041
     Dates: start: 20100709, end: 20100709
  37. ANHIBA [Suspect]
     Route: 054
     Dates: start: 20100630, end: 20100716
  38. FLURBIPROFEN [Suspect]
     Route: 041
     Dates: start: 20100709, end: 20100709
  39. OFLOXACIN [Suspect]
     Route: 047
     Dates: start: 20100728, end: 20100729
  40. HYALEIN [Suspect]
     Route: 047
     Dates: start: 20100723, end: 20100821
  41. GLYCERIN [Suspect]
     Indication: CONSTIPATION
     Route: 054
     Dates: start: 20100621
  42. HEPARIN SODIUM [Suspect]
     Route: 041
     Dates: start: 20100617
  43. MIDAZOLAM [Suspect]
     Route: 042
     Dates: start: 20100621, end: 20100621
  44. BIOFERMIN [Suspect]
     Route: 048
     Dates: start: 20100711, end: 20100718
  45. PEPCID [Suspect]
     Route: 048
     Dates: start: 20100626, end: 20100715

REACTIONS (2)
  - DRUG RASH WITH EOSINOPHILIA AND SYSTEMIC SYMPTOMS [None]
  - LYMPHOCYTE STIMULATION TEST POSITIVE [None]
